FAERS Safety Report 5742248-X (Version None)
Quarter: 2008Q2

REPORT INFORMATION
  Report Type: 
  Country: None (occurrence: None)
  Receive Date: 20080519
  Receipt Date: 20080509
  Transmission Date: 20081010
  Serious: Yes (Other)
  Sender: FDA-Public Use
  Company Number: PHHY2008ZA06159

PATIENT
  Age: 89 Year
  Sex: Male

DRUGS (5)
  1. TRANQIPAM [Concomitant]
  2. LENTOGESIC /01351301/ [Concomitant]
  3. AVELON [Concomitant]
  4. ZOMETA [Suspect]
     Dosage: 4MG POWDER FOR SOLUTION
  5. ZOMETA [Suspect]
     Dates: start: 20080508

REACTIONS (13)
  - BLOOD ALBUMIN DECREASED [None]
  - BLOOD CALCIUM DECREASED [None]
  - CONFUSIONAL STATE [None]
  - DELUSIONAL DISORDER, UNSPECIFIED TYPE [None]
  - FATIGUE [None]
  - HAEMATOCRIT DECREASED [None]
  - HAEMOGLOBIN DECREASED [None]
  - MONOCYTE COUNT ABNORMAL [None]
  - NAUSEA [None]
  - PROSTATIC SPECIFIC ANTIGEN INCREASED [None]
  - RED BLOOD CELL COUNT DECREASED [None]
  - RESTLESSNESS [None]
  - VOMITING [None]
